FAERS Safety Report 14190007 (Version 2)
Quarter: 2018Q1

REPORT INFORMATION
  Report Type: Spontaneous
  Country: JP (occurrence: JP)
  Receive Date: 20171115
  Receipt Date: 20180102
  Transmission Date: 20180508
  Serious: Yes (Death)
  Sender: FDA-Public Use
  Company Number: JP-VIFOR (INTERNATIONAL) INC.-VIT-2017-12312

PATIENT
  Age: 70 Year
  Sex: Female

DRUGS (7)
  1. ROCALTROL [Suspect]
     Active Substance: CALCITRIOL
     Indication: PRODUCT USED FOR UNKNOWN INDICATION
     Route: 048
     Dates: end: 20171006
  2. PHOSBLOCK [Concomitant]
     Active Substance: FERRIC HYDROXIDE
     Route: 065
  3. REGPARA [Concomitant]
     Active Substance: CINACALCET HYDROCHLORIDE
     Route: 065
  4. FESIN [Concomitant]
     Active Substance: IRON SUCROSE
     Route: 065
  5. PALUX [Concomitant]
     Active Substance: ALPROSTADIL
     Route: 065
  6. L CARTIN FF [Concomitant]
     Active Substance: LEVOCARNITINE
     Route: 065
  7. MIRCERA [Suspect]
     Active Substance: METHOXY POLYETHYLENE GLYCOL-EPOETIN BETA
     Indication: NEPHROGENIC ANAEMIA
     Route: 042
     Dates: start: 20171009, end: 201710

REACTIONS (1)
  - Death [Fatal]

NARRATIVE: CASE EVENT DATE: 20171023
